FAERS Safety Report 18265862 (Version 1)
Quarter: 2020Q3

REPORT INFORMATION
  Report Type: Report from Study
  Country: AU (occurrence: AU)
  Receive Date: 20200915
  Receipt Date: 20200915
  Transmission Date: 20201103
  Serious: Yes (Hospitalization, Disabling, Other)
  Sender: FDA-Public Use
  Company Number: AU-SA-2020SA137705

PATIENT

DRUGS (1)
  1. ALEMTUZUMAB [Suspect]
     Active Substance: ALEMTUZUMAB
     Indication: MULTIPLE SCLEROSIS
     Route: 041

REACTIONS (5)
  - Basedow^s disease [Unknown]
  - Exophthalmos [Unknown]
  - Endocrine ophthalmopathy [Unknown]
  - Eye pain [Unknown]
  - Dry eye [Unknown]
